FAERS Safety Report 21383434 (Version 1)
Quarter: 2022Q3

REPORT INFORMATION
  Report Type: Spontaneous
  Country: SE (occurrence: SE)
  Receive Date: 20220927
  Receipt Date: 20220927
  Transmission Date: 20221027
  Serious: Yes (Hospitalization, Other)
  Sender: FDA-Public Use
  Company Number: SE-GILEAD-2022-0597540

PATIENT
  Sex: Female

DRUGS (1)
  1. TRODELVY [Suspect]
     Active Substance: SACITUZUMAB GOVITECAN-HZIY
     Indication: Product used for unknown indication
     Route: 065

REACTIONS (7)
  - Thrombocytopenia [Unknown]
  - Neutropenia [Unknown]
  - Infection [Unknown]
  - Syncope [Unknown]
  - Metabolic disorder [Unknown]
  - Renal tubular disorder [Unknown]
  - Laboratory test abnormal [Unknown]
